FAERS Safety Report 6778856-7 (Version None)
Quarter: 2010Q2

REPORT INFORMATION
  Report Type: 
  Country: None (occurrence: None)
  Receive Date: 20100618
  Receipt Date: 20100608
  Transmission Date: 20101027
  Serious: No
  Sender: FDA-Public Use
  Company Number: US-JNJFOC-20100603322

PATIENT
  Sex: Female
  Weight: 78.02 kg

DRUGS (4)
  1. DURAGESIC-100 [Suspect]
     Indication: POST LAMINECTOMY SYNDROME
     Route: 062
  2. DURAGESIC-100 [Suspect]
     Route: 062
  3. PERCOCET [Concomitant]
     Indication: BACK PAIN
     Dosage: UPTO 5 PER DAY
     Route: 048
  4. CELEXA [Concomitant]
     Indication: DEPRESSION
     Route: 048

REACTIONS (2)
  - PAIN [None]
  - WRONG TECHNIQUE IN DRUG USAGE PROCESS [None]
